FAERS Safety Report 4325589-2 (Version None)
Quarter: 2004Q1

REPORT INFORMATION
  Report Type: 
  Country: None (occurrence: None)
  Receive Date: 20040323
  Receipt Date: 20040114
  Transmission Date: 20041129
  Serious: No
  Sender: FDA-Public Use
  Company Number: USA040155948

PATIENT
  Age: 65 Year
  Sex: Male

DRUGS (2)
  1. CIALIS [Suspect]
     Dosage: 10 MG
     Dates: start: 20031201
  2. ANTIHYPERTENSIVES [Concomitant]

REACTIONS (2)
  - GASTROINTESTINAL PAIN [None]
  - HYPOTENSION [None]
